FAERS Safety Report 10978594 (Version 3)
Quarter: 2019Q3

REPORT INFORMATION
  Report Type: Report from Study
  Country: US (occurrence: US)
  Receive Date: 20150402
  Receipt Date: 20190710
  Transmission Date: 20191004
  Serious: Yes (Other)
  Sender: FDA-Public Use
  Company Number: US-ARIAD PHARMACEUTICALS, INC-2015US004680

PATIENT
  Sex: Male

DRUGS (1)
  1. PONATINIB [Suspect]
     Active Substance: PONATINIB
     Indication: CHRONIC MYELOID LEUKAEMIA
     Dosage: 15 MG, QD
     Route: 048
     Dates: start: 201401

REACTIONS (24)
  - Renal vessel disorder [Unknown]
  - Haematocrit decreased [Unknown]
  - Platelet count decreased [Unknown]
  - Micturition urgency [Unknown]
  - Blood urea increased [Unknown]
  - Blood creatinine increased [Unknown]
  - Constipation [Unknown]
  - Pollakiuria [Unknown]
  - High density lipoprotein decreased [Unknown]
  - Hypercholesterolaemia [Unknown]
  - Lipase increased [Unknown]
  - Hypothyroidism [Unknown]
  - Haemoglobin decreased [Unknown]
  - Flatulence [Unknown]
  - Globulins increased [Unknown]
  - Body temperature decreased [Unknown]
  - Hypertension [Recovered/Resolved]
  - Blood glucose increased [Unknown]
  - Monocyte count increased [Unknown]
  - EGFR status assay [Unknown]
  - Thrombocytopenia [Unknown]
  - Amylase increased [Unknown]
  - Anxiety [Unknown]
  - Red blood cell count decreased [Unknown]
